FAERS Safety Report 8377461-9 (Version None)
Quarter: 2012Q2

REPORT INFORMATION
  Report Type: 
  Country: None (occurrence: None)
  Receive Date: 20120522
  Receipt Date: 20120404
  Transmission Date: 20120825
  Serious: No
  Sender: FDA-Public Use
  Company Number: US-ASTRAZENECA-2000AU02933

PATIENT
  Age: 47 Year
  Sex: Female

DRUGS (4)
  1. NEXIUM [Suspect]
     Route: 048
  2. PRILOSEC [Suspect]
     Indication: GASTROOESOPHAGEAL REFLUX DISEASE
     Route: 048
  3. PRILOSEC [Suspect]
     Indication: VOMITING
     Route: 048
  4. PRILOSEC [Suspect]
     Route: 048

REACTIONS (3)
  - THERAPEUTIC RESPONSE DECREASED [None]
  - INTENTIONAL DRUG MISUSE [None]
  - DYSPEPSIA [None]
